FAERS Safety Report 20882099 (Version 2)
Quarter: 2024Q1

REPORT INFORMATION
  Report Type: Other
  Country: US (occurrence: None)
  Receive Date: 20220527
  Receipt Date: 20240306
  Transmission Date: 20240410
  Serious: Yes (Hospitalization, Other)
  Sender: FDA-Public Use
  Company Number: US-ROCHE-3098232

PATIENT
  Age: 53 Year
  Sex: Male
  Weight: 102.15 kg

DRUGS (14)
  1. OCREVUS [Suspect]
     Active Substance: OCRELIZUMAB
     Indication: Multiple sclerosis
     Dosage: AT 0 AND 2 WEEKS
     Route: 042
  2. OCREVUS [Suspect]
     Active Substance: OCRELIZUMAB
     Route: 042
  3. ACETAMINOPHEN [Concomitant]
     Active Substance: ACETAMINOPHEN
  4. DIPHENHYDRAMINE [Concomitant]
     Active Substance: DIPHENHYDRAMINE
  5. SOLU-MEDROL [Concomitant]
     Active Substance: METHYLPREDNISOLONE SODIUM SUCCINATE
  6. VALSARTAN [Concomitant]
     Active Substance: VALSARTAN
  7. CARVEDILOL [Concomitant]
     Active Substance: CARVEDILOL
  8. PLAVIX [Concomitant]
     Active Substance: CLOPIDOGREL BISULFATE
  9. CHLORTHALIDONE [Concomitant]
     Active Substance: CHLORTHALIDONE
  10. ASPIRIN [Concomitant]
     Active Substance: ASPIRIN
  11. PEPCID [Concomitant]
     Active Substance: FAMOTIDINE
  12. NIFEDIPINE [Concomitant]
     Active Substance: NIFEDIPINE
  13. ATORVASTATIN [Concomitant]
     Active Substance: ATORVASTATIN
  14. TAMSULOSIN [Concomitant]
     Active Substance: TAMSULOSIN

REACTIONS (11)
  - Diplopia [Unknown]
  - Gait disturbance [Unknown]
  - Hypoaesthesia [Unknown]
  - Paraesthesia [Unknown]
  - Demyelination [Unknown]
  - Dizziness [Unknown]
  - Gait disturbance [Unknown]
  - Essential hypertension [Unknown]
  - Cerebral infarction [Unknown]
  - Muscular weakness [Unknown]
  - Balance disorder [Unknown]
